FAERS Safety Report 10252437 (Version 1)
Quarter: 2014Q2

REPORT INFORMATION
  Report Type: Report from Study
  Country: JP (occurrence: US)
  Receive Date: 20140623
  Receipt Date: 20140623
  Transmission Date: 20141212
  Serious: Yes (Hospitalization)
  Sender: FDA-Public Use
  Company Number: JP-CELGENEUS-087-50794-14063605

PATIENT
  Age: 65 Year
  Sex: Male
  Weight: 66 kg

DRUGS (14)
  1. VIDAZA [Suspect]
     Indication: MYELODYSPLASTIC SYNDROME
     Dosage: 100 MILLIGRAM
     Route: 041
     Dates: start: 20120111, end: 20120117
  2. VIDAZA [Suspect]
     Dosage: 100 MILLIGRAM
     Route: 041
     Dates: start: 20120208, end: 20120214
  3. VIDAZA [Suspect]
     Dosage: 100 MILLIGRAM
     Route: 041
     Dates: start: 20120308, end: 20120316
  4. VIDAZA [Suspect]
     Dosage: 100 MILLIGRAM
     Route: 041
     Dates: start: 20120412, end: 20120412
  5. VIDAZA [Suspect]
     Dosage: 100 MILLIGRAM
     Route: 041
     Dates: start: 20120510, end: 20120518
  6. VIDAZA [Suspect]
     Dosage: 100 MILLIGRAM
     Route: 041
     Dates: start: 20120614, end: 20120622
  7. BAKTAR [Concomitant]
     Indication: PRODUCT USED FOR UNKNOWN INDICATION
     Route: 065
  8. DIFLUCAN [Concomitant]
     Indication: PRODUCT USED FOR UNKNOWN INDICATION
     Route: 065
  9. BIOFERMIN R [Concomitant]
     Indication: PRODUCT USED FOR UNKNOWN INDICATION
     Route: 065
  10. TAKEPRON [Concomitant]
     Indication: PRODUCT USED FOR UNKNOWN INDICATION
     Route: 065
  11. CRAVIT [Concomitant]
     Indication: PRODUCT USED FOR UNKNOWN INDICATION
     Route: 065
     Dates: end: 20120412
  12. MARZULENE S [Concomitant]
     Indication: PRODUCT USED FOR UNKNOWN INDICATION
     Route: 065
  13. KYTRIL [Concomitant]
     Indication: PRODUCT USED FOR UNKNOWN INDICATION
     Route: 065
     Dates: start: 20120111, end: 20120117
  14. KYTRIL [Concomitant]
     Route: 065
     Dates: start: 20120208, end: 20120214

REACTIONS (1)
  - Loss of consciousness [Recovered/Resolved]
